FAERS Safety Report 11774950 (Version 2)
Quarter: 2016Q1

REPORT INFORMATION
  Report Type: Spontaneous
  Country: US (occurrence: US)
  Receive Date: 20151124
  Receipt Date: 20160301
  Transmission Date: 20160525
  Serious: Yes (Other)
  Sender: FDA-Public Use
  Company Number: US-ALLERGAN-1524273US

PATIENT
  Age: 33 Year
  Sex: Male

DRUGS (3)
  1. PREDNISONE. [Concomitant]
     Active Substance: PREDNISONE
     Indication: MACULAR OEDEMA
  2. PREDNISONE. [Concomitant]
     Active Substance: PREDNISONE
     Indication: UVEITIS
     Dosage: 60 MG, QD
     Route: 048
  3. OZURDEX [Suspect]
     Active Substance: DEXAMETHASONE
     Indication: MACULAR OEDEMA
     Dosage: 0.7 MG, SINGLE
     Route: 031
     Dates: start: 20151118, end: 20151118

REACTIONS (4)
  - Retinal injury [Not Recovered/Not Resolved]
  - Vitreous haemorrhage [Not Recovered/Not Resolved]
  - Blindness [Not Recovered/Not Resolved]
  - Retinal haemorrhage [Not Recovered/Not Resolved]

NARRATIVE: CASE EVENT DATE: 20151118
